FAERS Safety Report 8461485-7 (Version None)
Quarter: 2012Q2

REPORT INFORMATION
  Report Type: 
  Country: None (occurrence: None)
  Receive Date: 20120625
  Receipt Date: 20120622
  Transmission Date: 20120825
  Serious: Yes (Other)
  Sender: FDA-Public Use
  Company Number: US-AMGEN-USASP2012022995

PATIENT
  Sex: Male

DRUGS (17)
  1. FUROSEMIDE [Concomitant]
     Dosage: 20 MG, QD
     Route: 048
     Dates: start: 20120605
  2. TERAZOSIN HCL [Concomitant]
     Dosage: 5 MG, UNK
     Route: 048
     Dates: start: 20120605
  3. FINASTERIDE [Concomitant]
     Dosage: 5 MG, UNK
     Route: 048
     Dates: start: 20120605
  4. ATROVENT HFA [Concomitant]
     Dosage: 17 MCG; 2 PUFFS QID
     Route: 048
     Dates: start: 20120605
  5. K-TAB [Concomitant]
     Dosage: 10 MEQ, QD
     Route: 048
     Dates: start: 20120605
  6. INDOMETHACIN [Concomitant]
     Dosage: 50 MG, TID
     Route: 048
     Dates: start: 20120605
  7. ADVAIR DISKUS 100/50 [Concomitant]
     Dosage: 500 - 50 MCG ; 1 INHALATION TWICE DAILY
     Route: 048
     Dates: start: 20120605
  8. ACETAMINOPHEN W/ CODEINE [Concomitant]
     Dosage: 300- 30 MG; ONE TO TWO TABLETS DAILY
     Route: 048
     Dates: start: 20120605
  9. LOSARTAN POTASSIUM [Concomitant]
     Dosage: 100 MG, UNK
     Route: 048
     Dates: start: 20120605
  10. AMLODIPINE                         /00972402/ [Concomitant]
     Dosage: 10 MG, QD
     Route: 048
     Dates: start: 20120605
  11. FLUOXETINE [Concomitant]
     Dosage: 60 MG, QD
     Route: 048
     Dates: start: 20120605
  12. PROAIR HFA [Concomitant]
     Dosage: 90 UNK, UNK
     Dates: start: 20120605
  13. NIFEDIPINE [Concomitant]
     Dosage: 30 MG, BID
     Route: 048
     Dates: start: 20120605
  14. ENBREL [Suspect]
     Indication: RHEUMATOID ARTHRITIS
     Dosage: 50 MG, QWK
     Dates: start: 20011001
  15. FLUTICASONE [Concomitant]
     Dosage: 50 MUG, 2 SP EN ONCE DAILY
     Route: 045
     Dates: start: 20120605
  16. OMEPRAZOLE [Concomitant]
     Dosage: 20 MG, UNK
     Route: 048
     Dates: start: 20120605
  17. LORAZEPAM [Concomitant]
     Dosage: 0.5 - 1 TABLET TID PRN
     Route: 048
     Dates: start: 20120605

REACTIONS (25)
  - SLEEP APNOEA SYNDROME [None]
  - CONJUNCTIVITIS ALLERGIC [None]
  - CLAUSTROPHOBIA [None]
  - HYPOAESTHESIA [None]
  - HERPES SIMPLEX [None]
  - HEADACHE [None]
  - BLADDER OUTLET OBSTRUCTION [None]
  - ESSENTIAL HYPERTENSION [None]
  - LUMBAR RADICULOPATHY [None]
  - SPONDYLOLYSIS [None]
  - LUNG DISORDER [None]
  - TENDON RUPTURE [None]
  - ECZEMA [None]
  - INTERVERTEBRAL DISC DEGENERATION [None]
  - GASTROOESOPHAGEAL REFLUX DISEASE [None]
  - CHEST PAIN [None]
  - DRY EYE [None]
  - LIVER FUNCTION TEST ABNORMAL [None]
  - ANXIETY [None]
  - PROSTATITIS [None]
  - DUPUYTREN'S CONTRACTURE [None]
  - PAIN [None]
  - RHINITIS ALLERGIC [None]
  - SINUSITIS [None]
  - BRONCHITIS [None]
